FAERS Safety Report 5076353-0 (Version None)
Quarter: 2006Q3

REPORT INFORMATION
  Report Type: 
  Country: None (occurrence: None)
  Receive Date: 20060807
  Receipt Date: 20060720
  Transmission Date: 20061208
  Serious: Yes (Life-Threatening, Hospitalization)
  Sender: FDA-Public Use
  Company Number: 29608

PATIENT
  Age: 22 Year
  Sex: Female

DRUGS (1)
  1. THEOPHYLLINE-SR [Suspect]
     Route: 048

REACTIONS (7)
  - EPILEPSY [None]
  - HYPOKALAEMIA [None]
  - HYPOTENSION [None]
  - NAUSEA [None]
  - PALPITATIONS [None]
  - SUICIDE ATTEMPT [None]
  - VOMITING [None]
